FAERS Safety Report 18257070 (Version 1)
Quarter: 2020Q3

REPORT INFORMATION
  Report Type: Spontaneous
  Country: JP (occurrence: JP)
  Receive Date: 20200911
  Receipt Date: 20200911
  Transmission Date: 20201103
  Serious: Yes (Other)
  Sender: FDA-Public Use
  Company Number: JP-B.I. PHARMACEUTICALS,INC./RIDGEFIELD-2020-BI-045451

PATIENT
  Age: 89 Year
  Sex: Female

DRUGS (7)
  1. PRIZBIND [Suspect]
     Active Substance: IDARUCIZUMAB
     Indication: PROCOAGULANT THERAPY
     Route: 042
     Dates: start: 20200226
  2. LASIX [Concomitant]
     Active Substance: FUROSEMIDE
     Indication: CARDIAC FAILURE
     Route: 065
  3. MAGMITT [Concomitant]
     Active Substance: MAGNESIUM OXIDE
     Indication: CONSTIPATION
     Route: 065
  4. PAXIL [PIROXICAM] [Concomitant]
     Active Substance: PIROXICAM
     Indication: DEPRESSION
     Route: 065
  5. FERROUS SODIUM CITRATE [Concomitant]
     Active Substance: SODIUM FERROUS CITRATE
     Indication: IRON DEFICIENCY ANAEMIA
     Route: 065
  6. METILDIGOXIN [Concomitant]
     Active Substance: METILDIGOXIN
     Indication: CARDIAC FAILURE
     Route: 065
  7. SENNOSIDE [SENNOSIDE A+B] [Concomitant]
     Active Substance: SENNOSIDES A AND B
     Indication: CONSTIPATION
     Route: 065

REACTIONS (7)
  - Ileus [Unknown]
  - Pyrexia [Unknown]
  - Neoplasm progression [Unknown]
  - Haematoma [Unknown]
  - Fall [Unknown]
  - Malignant neoplasm progression [Unknown]
  - Abdominal pain [Unknown]

NARRATIVE: CASE EVENT DATE: 20200229
